FAERS Safety Report 25731943 (Version 1)
Quarter: 2025Q3

REPORT INFORMATION
  Report Type: Spontaneous
  Country: US (occurrence: None)
  Receive Date: 20250827
  Receipt Date: 20250827
  Transmission Date: 20251020
  Serious: No
  Sender: FDA-CTU
  Company Number: None

PATIENT
  Age: 51 Year
  Sex: Female

DRUGS (4)
  1. PAXLOVID [Suspect]
     Active Substance: NIRMATRELVIR\RITONAVIR
     Indication: COVID-19
     Dosage: OTHER QUANTITY : 10 TABLET(S);?FREQUENCY : TWICE A DAY;?
     Route: 048
     Dates: start: 20250826, end: 20250826
  2. Oxbutyn [Concomitant]
  3. Venaflexane [Concomitant]
  4. Althoughine [Concomitant]

REACTIONS (2)
  - Anxiety [None]
  - Feeling hot [None]

NARRATIVE: CASE EVENT DATE: 20250826
